FAERS Safety Report 20969736 (Version 7)
Quarter: 2022Q3

REPORT INFORMATION
  Report Type: Report from Study
  Country: CA (occurrence: CA)
  Receive Date: 20220616
  Receipt Date: 20220812
  Transmission Date: 20221026
  Serious: Yes (Hospitalization, Other)
  Sender: FDA-Public Use
  Company Number: CA-GILEAD-2022-0578795

PATIENT
  Sex: Female

DRUGS (7)
  1. SACITUZUMAB GOVITECAN [Suspect]
     Active Substance: SACITUZUMAB GOVITECAN
     Indication: Triple negative breast cancer
     Dosage: 680 MG
     Route: 042
     Dates: start: 20211223, end: 20220428
  2. SACITUZUMAB GOVITECAN [Suspect]
     Active Substance: SACITUZUMAB GOVITECAN
     Dosage: 680 MG
     Route: 042
     Dates: start: 20220520, end: 20220520
  3. SACITUZUMAB GOVITECAN [Suspect]
     Active Substance: SACITUZUMAB GOVITECAN
     Dosage: 680 MG
     Route: 042
     Dates: start: 20220617
  4. SACITUZUMAB GOVITECAN [Suspect]
     Active Substance: SACITUZUMAB GOVITECAN
     Dosage: 680 MG, D1
     Route: 042
     Dates: start: 20220704, end: 20220704
  5. SACITUZUMAB GOVITECAN [Suspect]
     Active Substance: SACITUZUMAB GOVITECAN
     Dosage: 680 MG, D1
     Route: 042
     Dates: start: 20220728, end: 20220728
  6. AC PC [Concomitant]
  7. ERIBULIN [Concomitant]
     Active Substance: ERIBULIN

REACTIONS (10)
  - Sepsis [Unknown]
  - Urinary tract infection [Unknown]
  - Disease progression [Not Recovered/Not Resolved]
  - COVID-19 [Unknown]
  - Malaise [Unknown]
  - Nasopharyngitis [Unknown]
  - Pyrexia [Unknown]
  - Cough [Unknown]
  - Fatigue [Unknown]
  - Inappropriate schedule of product administration [Not Recovered/Not Resolved]
